FAERS Safety Report 19695336 (Version 1)
Quarter: 2021Q3

REPORT INFORMATION
  Report Type: Spontaneous
  Country: US (occurrence: US)
  Receive Date: 20210812
  Receipt Date: 20210812
  Transmission Date: 20211014
  Serious: Yes (Hospitalization, Other)
  Sender: FDA-Public Use
  Company Number: US-REGENERON PHARMACEUTICALS, INC.-2021-74253

PATIENT

DRUGS (1)
  1. EYLEA [Suspect]
     Active Substance: AFLIBERCEPT
     Indication: NEOVASCULAR AGE-RELATED MACULAR DEGENERATION
     Dosage: UNK
     Route: 031
     Dates: start: 20191227

REACTIONS (4)
  - Haemorrhagic stroke [Unknown]
  - Hypertensive angiopathy [Unknown]
  - Blood pressure systolic increased [Unknown]
  - Hypertension [Unknown]

NARRATIVE: CASE EVENT DATE: 202102
